FAERS Safety Report 10869549 (Version 5)
Quarter: 2015Q3

REPORT INFORMATION
  Report Type: Spontaneous
  Country: GB (occurrence: GB)
  Receive Date: 20150226
  Receipt Date: 20150901
  Transmission Date: 20151125
  Serious: Yes (Death, Hospitalization)
  Sender: FDA-Public Use
  Company Number: GB-ACCORD-028715

PATIENT
  Age: 58 Year
  Sex: Male
  Weight: 100 kg

DRUGS (4)
  1. LISINOPRIL. [Suspect]
     Active Substance: LISINOPRIL
     Indication: HYPERTENSION
     Dates: start: 2002, end: 20141126
  2. AMLODIPINE [Suspect]
     Active Substance: AMLODIPINE BESYLATE
     Indication: HYPERTENSION
     Dosage: AMLODIPINE BESILATE
     Dates: start: 20140922
  3. DOXAZOSIN [Suspect]
     Active Substance: DOXAZOSIN\DOXAZOSIN MESYLATE
     Indication: HYPERTENSION
     Dosage: INITIALLY RECEIVED 4 MG TWICE DAILY SINCE 2002, THEN DOSE INCREASED TO 8 MG BID.
     Dates: start: 2002
  4. BECONASE AQ [Concomitant]
     Active Substance: BECLOMETHASONE DIPROPIONATE MONOHYDRATE
     Indication: INFLUENZA LIKE ILLNESS
     Dates: start: 201405

REACTIONS (18)
  - Cardiac failure acute [Unknown]
  - Dysarthria [Unknown]
  - Muscle spasms [Unknown]
  - Lower respiratory tract infection [Unknown]
  - Gait disturbance [Unknown]
  - Muscular weakness [Unknown]
  - Cardiac failure congestive [Fatal]
  - Hyponatraemia [Unknown]
  - Blood urine present [Unknown]
  - Dyspnoea [Unknown]
  - Asthenia [Unknown]
  - Weight decreased [Unknown]
  - Coronary artery disease [Fatal]
  - Muscle atrophy [Unknown]
  - Hypokalaemia [Unknown]
  - Confusional state [Unknown]
  - Anaemia [Unknown]
  - Multifocal motor neuropathy [Unknown]

NARRATIVE: CASE EVENT DATE: 2009
